FAERS Safety Report 14878802 (Version 1)
Quarter: 2018Q2

REPORT INFORMATION
  Report Type: Spontaneous
  Country: US (occurrence: US)
  Receive Date: 20180511
  Receipt Date: 20180511
  Transmission Date: 20180711
  Serious: No
  Sender: FDA-Public Use
  Company Number: US-BIOGEN-2016BI00260607

PATIENT
  Sex: Female

DRUGS (1)
  1. TYSABRI [Suspect]
     Active Substance: NATALIZUMAB
     Indication: MULTIPLE SCLEROSIS
     Route: 065
     Dates: start: 20151113, end: 20170630

REACTIONS (3)
  - Genital infection female [Recovered/Resolved]
  - Urinary tract infection [Recovered/Resolved]
  - Menopausal symptoms [Recovered/Resolved]

NARRATIVE: CASE EVENT DATE: 2015
